FAERS Safety Report 5142678-3 (Version None)
Quarter: 2006Q4

REPORT INFORMATION
  Report Type: 
  Country: None (occurrence: None)
  Receive Date: 20061027
  Receipt Date: 20061017
  Transmission Date: 20070319
  Serious: Yes (Death)
  Sender: FDA-Public Use
  Company Number: 2006BI015102

PATIENT
  Sex: Male

DRUGS (2)
  1. ZEVALIN [Suspect]
     Dosage: 1X; IV
     Route: 042
     Dates: start: 20061010, end: 20061010
  2. RITUXIMAB [Concomitant]

REACTIONS (1)
  - CEREBROVASCULAR ACCIDENT [None]
